FAERS Safety Report 7331258-7 (Version None)
Quarter: 2011Q1

REPORT INFORMATION
  Report Type: 
  Country: None (occurrence: None)
  Receive Date: 20110228
  Receipt Date: 20110228
  Transmission Date: 20110831
  Serious: Yes (Hospitalization)
  Sender: FDA-Public Use
  Company Number: None

PATIENT
  Age: 75 Year
  Sex: Male
  Weight: 85.7298 kg

DRUGS (1)
  1. JANUVIA [Suspect]
     Indication: DIABETES MELLITUS
     Dosage: 10MG 1 PER DAY ORALLY
     Route: 048
     Dates: start: 20100110, end: 20101104

REACTIONS (3)
  - DIZZINESS [None]
  - DYSSTASIA [None]
  - NAUSEA [None]
